FAERS Safety Report 8477689-3 (Version None)
Quarter: 2012Q2

REPORT INFORMATION
  Report Type: 
  Country: None (occurrence: None)
  Receive Date: 20120621
  Receipt Date: 20120611
  Transmission Date: 20120825
  Serious: Yes (Other)
  Sender: FDA-Public Use
  Company Number: 2012SA042264

PATIENT
  Age: 46 Year
  Sex: Female

DRUGS (1)
  1. CAPZASIN [Suspect]
     Dates: start: 20120610, end: 20120610

REACTIONS (2)
  - BLISTER [None]
  - SKIN BURNING SENSATION [None]
